FAERS Safety Report 14168141 (Version 2)
Quarter: 2018Q2

REPORT INFORMATION
  Report Type: Spontaneous
  Country: US (occurrence: US)
  Receive Date: 20171107
  Receipt Date: 20180515
  Transmission Date: 20180711
  Serious: No
  Sender: FDA-Public Use
  Company Number: US-SA-2017SA096693

PATIENT
  Age: 70 Year
  Sex: Male

DRUGS (8)
  1. SOLOSTAR [Concomitant]
     Active Substance: DEVICE
     Indication: TYPE 2 DIABETES MELLITUS
     Dates: start: 20170401
  2. SOLOSTAR [Concomitant]
     Active Substance: DEVICE
     Indication: TYPE 2 DIABETES MELLITUS
     Dates: start: 20170517
  3. NOVOLOG [Concomitant]
     Active Substance: INSULIN ASPART
     Dosage: REDUCED HIS NOVOLOG FROM 6 UNITS TO 4 UNITS TWICE DAILY DOSE:6 UNIT(S)
  4. TOUJEO [Suspect]
     Active Substance: INSULIN GLARGINE
     Indication: TYPE 2 DIABETES MELLITUS
     Dosage: DOSE:29 UNIT(S)
     Route: 051
     Dates: start: 20170401
  5. SOLOSTAR [Concomitant]
     Active Substance: DEVICE
     Indication: TYPE 2 DIABETES MELLITUS
     Dates: start: 201705
  6. TOUJEO [Suspect]
     Active Substance: INSULIN GLARGINE
     Indication: TYPE 2 DIABETES MELLITUS
     Dosage: DOSE:30 UNIT(S)
     Route: 051
     Dates: start: 201705
  7. TOUJEO [Suspect]
     Active Substance: INSULIN GLARGINE
     Indication: TYPE 2 DIABETES MELLITUS
     Dosage: DOSE:32 UNIT(S)
     Route: 051
     Dates: start: 20170517
  8. NOVOLOG [Concomitant]
     Active Substance: INSULIN ASPART
     Dosage: DOSE:4 UNIT(S)

REACTIONS (1)
  - Blood glucose decreased [Unknown]

NARRATIVE: CASE EVENT DATE: 201705
